FAERS Safety Report 14114239 (Version 1)
Quarter: 2017Q4

REPORT INFORMATION
  Report Type: Spontaneous
  Country: KR (occurrence: KR)
  Receive Date: 20171023
  Receipt Date: 20171023
  Transmission Date: 20180321
  Serious: Yes (Other)
  Sender: FDA-Public Use
  Company Number: KR-009507513-1710KOR007248

PATIENT
  Sex: Female

DRUGS (1)
  1. FOSAMAX PLUS D [Suspect]
     Active Substance: ALENDRONATE SODIUM\CHOLECALCIFEROL
     Dosage: UNK
     Route: 048
     Dates: start: 2016

REACTIONS (4)
  - Seizure [Unknown]
  - Hypoaesthesia [Unknown]
  - Headache [Unknown]
  - Gastritis [Unknown]
